APPROVED DRUG PRODUCT: ENDEP
Active Ingredient: AMITRIPTYLINE HYDROCHLORIDE
Strength: 50MG
Dosage Form/Route: TABLET;ORAL
Application: A083639 | Product #003
Applicant: HOFFMANN LA ROCHE INC
Approved: Approved Prior to Jan 1, 1982 | RLD: No | RS: No | Type: DISCN